FAERS Safety Report 19036608 (Version 1)
Quarter: 2021Q1

REPORT INFORMATION
  Report Type: Spontaneous
  Country: PT (occurrence: PT)
  Receive Date: 20210322
  Receipt Date: 20210322
  Transmission Date: 20210420
  Serious: Yes (Hospitalization, Other)
  Sender: FDA-Public Use
  Company Number: PT-AMGEN-PRTNI2018123015

PATIENT
  Age: 65 Year
  Sex: Female
  Weight: 87 kg

DRUGS (27)
  1. LETROZOLE. [Suspect]
     Active Substance: LETROZOLE
     Indication: BREAST CANCER
     Dosage: 2.5 MILLIGRAM
     Route: 048
     Dates: start: 20180417
  2. BILASTINE [Concomitant]
     Active Substance: BILASTINE
     Dosage: UNK
  3. PERTUZUMAB. [Suspect]
     Active Substance: PERTUZUMAB
     Dosage: 420 MILLIGRAM, Q3WK
     Route: 042
     Dates: start: 20171024
  4. FEMARA [Suspect]
     Active Substance: LETROZOLE
     Indication: BREAST CANCER
     Dosage: UNK
     Route: 048
     Dates: start: 20180417
  5. OMEPRAZOLE. [Concomitant]
     Active Substance: OMEPRAZOLE
     Dosage: UNK
  6. BUDESONIDE. [Concomitant]
     Active Substance: BUDESONIDE
     Dosage: UNK
  7. MONTELUKAST [Concomitant]
     Active Substance: MONTELUKAST SODIUM
     Dosage: UNK
  8. THIOCOLCHICOSIDE [Concomitant]
     Active Substance: THIOCOLCHICOSIDE
     Dosage: UNK
     Dates: start: 20180108
  9. THIOCOLCHICOSIDE [Concomitant]
     Active Substance: THIOCOLCHICOSIDE
     Dosage: UNK
     Dates: start: 20180706
  10. DIAZEPAM. [Concomitant]
     Active Substance: DIAZEPAM
     Dosage: UNK
  11. LOPERAMIDE [Concomitant]
     Active Substance: LOPERAMIDE
     Dosage: UNK
     Dates: start: 20180104, end: 20180615
  12. LISINOPRIL. [Concomitant]
     Active Substance: LISINOPRIL
     Dosage: UNK
  13. FORMOTEROL [Concomitant]
     Active Substance: FORMOTEROL
     Dosage: UNK
  14. ESCITALOPRAM [Concomitant]
     Active Substance: ESCITALOPRAM OXALATE
     Dosage: UNK
  15. MORFINE [Concomitant]
     Active Substance: MORPHINE
  16. XGEVA [Suspect]
     Active Substance: DENOSUMAB
     Indication: BREAST CANCER
     Dosage: 120 MILLIGRAM, Q3WK
     Route: 058
     Dates: start: 20180509
  17. NAPROXENO [NAPROXEN] [Concomitant]
     Active Substance: NAPROXEN
     Dosage: UNK
     Dates: start: 20180706
  18. METFORMIN [Concomitant]
     Active Substance: METFORMIN HYDROCHLORIDE
     Dosage: UNK
  19. PERTUZUMAB. [Suspect]
     Active Substance: PERTUZUMAB
     Indication: BREAST CANCER
     Dosage: 1 UNK, QWK
     Route: 042
     Dates: start: 20171024
  20. PARACETAMOL [Concomitant]
     Active Substance: ACETAMINOPHEN
     Dosage: UNK
     Dates: start: 20180108
  21. NEUTRAL INSULIN INJECTION [Concomitant]
     Active Substance: INSULIN PORK\INSULIN PURIFIED PORK
     Dosage: UNK
  22. ZOLPIDEM [Concomitant]
     Active Substance: ZOLPIDEM TARTRATE
     Dosage: UNK
  23. TRASTUZUMAB. [Suspect]
     Active Substance: TRASTUZUMAB
     Indication: BREAST CANCER
     Dosage: 1 MILLIGRAM, QWK
     Route: 042
     Dates: start: 20171024
  24. TRASTUZUMAB. [Suspect]
     Active Substance: TRASTUZUMAB
     Dosage: 600 MILLIGRAM, Q3WK
     Route: 042
  25. DOCETAXEL. [Suspect]
     Active Substance: DOCETAXEL
     Indication: BREAST CANCER
     Dosage: 1 UNK, QWK
     Route: 042
     Dates: start: 20171024
  26. ROSUVASTATIN. [Concomitant]
     Active Substance: ROSUVASTATIN
     Dosage: UNK
  27. ENOXAPARIN [Concomitant]
     Active Substance: ENOXAPARIN
     Dosage: UNK

REACTIONS (2)
  - Pyelonephritis [Recovered/Resolved]
  - Off label use [Unknown]

NARRATIVE: CASE EVENT DATE: 20180714
